FAERS Safety Report 9412291 (Version 1)
Quarter: 2013Q3

REPORT INFORMATION
  Report Type: Spontaneous
  Country: BR (occurrence: BR)
  Receive Date: 20130722
  Receipt Date: 20130722
  Transmission Date: 20140515
  Serious: Yes (Hospitalization)
  Sender: FDA-Public Use
  Company Number: BR-PFIZER INC-2013208728

PATIENT
  Age: 75 Year
  Sex: Male
  Weight: 90 kg

DRUGS (11)
  1. CITALOR [Suspect]
     Dosage: 20 MG, UNK
     Dates: start: 200712
  2. ACTOS [Concomitant]
     Indication: DIABETES MELLITUS
     Dosage: UNK
     Dates: start: 2011
  3. AAS [Concomitant]
     Indication: PROPHYLAXIS
     Dosage: UNK
     Dates: start: 2009
  4. ATENOLOL [Concomitant]
     Indication: HYPERTENSION
     Dosage: UNK
     Dates: start: 2008
  5. CIBRATO [Concomitant]
     Indication: BLOOD CHOLESTEROL
     Dosage: UNK
     Dates: start: 2012
  6. CLOPIDOGREL [Concomitant]
     Indication: ANTICOAGULANT THERAPY
     Dosage: UNK
     Dates: start: 2010
  7. GLIMEPIRIDE [Concomitant]
     Indication: DIABETES MELLITUS
     Dosage: UNK
     Dates: start: 2009
  8. JANUVIA [Concomitant]
     Indication: DIABETES MELLITUS
     Dosage: UNK
     Dates: start: 2009
  9. NATRILIX [Concomitant]
     Indication: HYPERTENSION
     Dosage: UNK
     Dates: start: 2007
  10. PRESSOTEC [Concomitant]
     Indication: HYPERTENSION
     Dosage: UNK
     Dates: start: 2007
  11. ATENSINA [Concomitant]
     Indication: HYPERTENSION
     Dosage: UNK
     Dates: start: 201305

REACTIONS (1)
  - Infarction [Recovering/Resolving]
